FAERS Safety Report 13922560 (Version 1)
Quarter: 2017Q3

REPORT INFORMATION
  Report Type: Spontaneous
  Country: US (occurrence: US)
  Receive Date: 20170830
  Receipt Date: 20170830
  Transmission Date: 20171127
  Serious: No
  Sender: FDA-Public Use
  Company Number: US-TOLMAR, INC.-2017US007098

PATIENT
  Age: 47 Year
  Sex: Female

DRUGS (1)
  1. ELIGARD [Suspect]
     Active Substance: LEUPROLIDE ACETATE
     Indication: HORMONE SUPPRESSION THERAPY
     Dosage: 22.5 MG, Q3MONTHS
     Route: 058
     Dates: start: 20170526

REACTIONS (3)
  - Off label use [Unknown]
  - Intercepted medication error [Unknown]
  - Needle issue [Unknown]

NARRATIVE: CASE EVENT DATE: 20170526
